FAERS Safety Report 17623216 (Version 2)
Quarter: 2020Q2

REPORT INFORMATION
  Report Type: Spontaneous
  Country: DE (occurrence: DE)
  Receive Date: 20200403
  Receipt Date: 20200526
  Transmission Date: 20200713
  Serious: Yes (Other)
  Sender: FDA-Public Use
  Company Number: DE-ALEXION PHARMACEUTICALS INC.-A202004566

PATIENT
  Age: 39 Year
  Sex: Female

DRUGS (1)
  1. SOLIRIS [Suspect]
     Active Substance: ECULIZUMAB
     Indication: ATYPICAL HAEMOLYTIC URAEMIC SYNDROME
     Route: 065

REACTIONS (9)
  - Nephrectomy [Recovered/Resolved]
  - Nephritis [Recovered/Resolved]
  - Renal tubular atrophy [Recovered/Resolved]
  - Biopsy [Recovered/Resolved]
  - Thrombotic microangiopathy [Recovered/Resolved]
  - Transplant rejection [Unknown]
  - Inflammation [Recovered/Resolved]
  - Kidney fibrosis [Recovered/Resolved]
  - Pyelitis [Recovered/Resolved]
